FAERS Safety Report 8890943 (Version 3)
Quarter: 2013Q1

REPORT INFORMATION
  Report Type: Spontaneous
  Country: US (occurrence: US)
  Receive Date: 20121106
  Receipt Date: 20130108
  Transmission Date: 20140127
  Serious: No
  Sender: FDA-Public Use
  Company Number: US-ASTRAZENECA-2012SE79350

PATIENT
  Age: 60 Year
  Sex: Female

DRUGS (3)
  1. SEROQUEL XR [Suspect]
     Route: 048
  2. KLONOPIN [Concomitant]
  3. SERTRALINE HYDROCHLORIDE [Concomitant]

REACTIONS (5)
  - Exostosis [Unknown]
  - Gait disturbance [Unknown]
  - Pain in extremity [Unknown]
  - Post-traumatic stress disorder [Unknown]
  - Road traffic accident [Unknown]
